FAERS Safety Report 10204029 (Version 1)
Quarter: 2014Q2

REPORT INFORMATION
  Report Type: Spontaneous
  Country: BR (occurrence: BR)
  Receive Date: 20140529
  Receipt Date: 20140529
  Transmission Date: 20141212
  Serious: Yes (Hospitalization)
  Sender: FDA-Public Use
  Company Number: BR-PFIZER INC-2014145818

PATIENT
  Age: 68 Year
  Sex: Female
  Weight: 165 kg

DRUGS (5)
  1. CELEBRA [Suspect]
     Indication: PAIN
     Dosage: 200 MG (ONE CAPSULE), 2X/DAY
     Route: 048
     Dates: start: 20131014
  2. LYRICA [Suspect]
     Indication: PAIN
     Dosage: 150 MG (TWO CAPSULES OF 75MG), DAILY
     Route: 048
     Dates: start: 20130316
  3. LEXAPRO [Concomitant]
     Indication: DEPRESSION
     Dosage: UNK
  4. REVENGE [Concomitant]
     Indication: PANIC DISORDER
     Dosage: UNK
  5. REVENGE [Concomitant]
     Indication: DEPRESSION

REACTIONS (1)
  - Cyst [Unknown]
